FAERS Safety Report 24071192 (Version 2)
Quarter: 2024Q3

REPORT INFORMATION
  Report Type: Report from Study
  Country: US (occurrence: US)
  Receive Date: 20240710
  Receipt Date: 20240710
  Transmission Date: 20241016
  Serious: No
  Sender: ROCHE
  Company Number: US-ROCHE-3053660

PATIENT
  Age: 1 Year
  Sex: Male
  Weight: 8.1 kg

DRUGS (10)
  1. EVRYSDI [Suspect]
     Active Substance: RISDIPLAM
     Indication: Spinal muscular atrophy
     Dosage: (STRENGTH: 0.75 MG/ML, 80 ML ORAL LIQUID), 0.975 MG= 1.3 ML
     Route: 048
     Dates: start: 20210406
  2. EVRYSDI [Suspect]
     Active Substance: RISDIPLAM
  3. EVRYSDI [Suspect]
     Active Substance: RISDIPLAM
  4. EVRYSDI [Suspect]
     Active Substance: RISDIPLAM
  5. FAMOTIDINE [Concomitant]
     Active Substance: FAMOTIDINE
     Dosage: 40 MG/5 ML, DOSE 2MG= 0.25ML
     Route: 048
  6. PREDNISOLONE SODIUM PHOSPHATE [Concomitant]
     Active Substance: PREDNISOLONE SODIUM PHOSPHATE
     Dosage: 3 MG/ML, DOSE: 4.5 MG= 1.5 ML
     Route: 048
  7. PREDNISOLONE SODIUM PHOSPHATE [Concomitant]
     Active Substance: PREDNISOLONE SODIUM PHOSPHATE
     Dosage: 3 MG/ML, DOSE: 4.8 MG= 1.6 ML
     Route: 048
  8. PREDNISOLONE SODIUM PHOSPHATE [Concomitant]
     Active Substance: PREDNISOLONE SODIUM PHOSPHATE
     Dosage: 3 MG/ML, DOSE: 1.2 MG= 0.4 ML X 1WEEK, THEN GIVE 0.4ML ON SATURDAY, MONDAY, WEDNESDAY AND FRIDAY THE
     Route: 048
  9. OMEPRAZOLE [Concomitant]
     Active Substance: OMEPRAZOLE
     Route: 048
  10. SYNAGIS [Concomitant]
     Active Substance: PALIVIZUMAB
     Dosage: 100 MG/ML
     Route: 030

REACTIONS (5)
  - COVID-19 [Recovered/Resolved]
  - Streptococcal infection [Recovered/Resolved]
  - Pyrexia [Recovered/Resolved]
  - Abdominal discomfort [Recovered/Resolved]
  - Cough [Recovered/Resolved]

NARRATIVE: CASE EVENT DATE: 20220104
